FAERS Safety Report 22048061 (Version 2)
Quarter: 2023Q1

REPORT INFORMATION
  Report Type: Report from Study
  Country: US (occurrence: US)
  Receive Date: 20230301
  Receipt Date: 20230308
  Transmission Date: 20230417
  Serious: Yes (Hospitalization)
  Sender: FDA-Public Use
  Company Number: US-IMMUNOCORE, LTD-2023-IMC-001427

PATIENT
  Age: 63 Year
  Sex: Female

DRUGS (2)
  1. KIMMTRAK [Suspect]
     Active Substance: TEBENTAFUSP-TEBN
     Indication: Metastatic ocular melanoma
     Dosage: UNK, SINGLE, DOSE 1
     Dates: start: 202302
  2. KIMMTRAK [Suspect]
     Active Substance: TEBENTAFUSP-TEBN
     Dosage: UNK, SINGLE, DOSE 2
     Dates: start: 20230228

REACTIONS (6)
  - Skin weeping [Unknown]
  - Hypotension [Unknown]
  - Rash [Unknown]
  - Swelling face [Unknown]
  - Rash erythematous [Unknown]
  - Product dose omission issue [Unknown]

NARRATIVE: CASE EVENT DATE: 20230221
